FAERS Safety Report 11351567 (Version 1)
Quarter: 2015Q3

REPORT INFORMATION
  Report Type: Spontaneous
  Country: US (occurrence: US)
  Receive Date: 20150807
  Receipt Date: 20150807
  Transmission Date: 20151125
  Serious: No
  Sender: FDA-Public Use
  Company Number: US-JNJFOC-20140922817

PATIENT
  Sex: Male
  Weight: 83.92 kg

DRUGS (1)
  1. MENS ROGAINE EXTRA STRENGTH [Suspect]
     Active Substance: MINOXIDIL
     Indication: HAIR GROWTH ABNORMAL
     Dosage: ONCE AT NIGHT
     Route: 061

REACTIONS (2)
  - Alopecia [Recovered/Resolved]
  - Paraesthesia [Unknown]
